FAERS Safety Report 12046043 (Version 2)
Quarter: 2016Q3

REPORT INFORMATION
  Report Type: Report from Study
  Country: AU (occurrence: AU)
  Receive Date: 20160208
  Receipt Date: 20160720
  Transmission Date: 20161109
  Serious: Yes (Death, Life-Threatening, Hospitalization, Other)
  Sender: FDA-Public Use
  Company Number: PHHO2014AU018465

PATIENT
  Age: 50 Year
  Sex: Male
  Weight: 71 kg

DRUGS (21)
  1. PAZOPANIB [Suspect]
     Active Substance: PAZOPANIB
     Indication: RENAL CANCER METASTATIC
     Dosage: 800 MG, QD
     Route: 048
     Dates: start: 20130513, end: 20131028
  2. DEXAMETHASONE. [Concomitant]
     Active Substance: DEXAMETHASONE
     Dosage: 2 QOD
     Route: 048
     Dates: start: 20131119, end: 20131206
  3. VALTREX [Concomitant]
     Active Substance: VALACYCLOVIR HYDROCHLORIDE
     Indication: VARICELLA ZOSTER VIRUS INFECTION
     Dosage: BID
     Route: 048
     Dates: start: 20131217, end: 20131224
  4. EVEROLIMUS [Suspect]
     Active Substance: EVEROLIMUS
     Indication: METASTATIC RENAL CELL CARCINOMA
     Dosage: 10 MG, QD
     Route: 048
     Dates: start: 20131029, end: 20140220
  5. MAXOLON [Concomitant]
     Active Substance: METOCLOPRAMIDE HYDROCHLORIDE
     Dosage: 10 PRN
     Route: 048
     Dates: start: 20131201, end: 20140220
  6. SOMAC [Concomitant]
     Active Substance: PANTOPRAZOLE SODIUM
     Indication: ERUCTATION
     Dosage: 40 QD
     Route: 048
     Dates: start: 20131028, end: 20131101
  7. THYROXINE [Concomitant]
     Active Substance: LEVOTHYROXINE
     Indication: HYPOTHYROIDISM
     Dosage: 25 QD
     Route: 048
     Dates: start: 20130812, end: 20130902
  8. ENDONE [Concomitant]
     Active Substance: OXYCODONE HYDROCHLORIDE
     Indication: PAIN
     Dosage: 5 PRN
     Route: 048
     Dates: start: 20131201, end: 20140220
  9. THYROXINE [Concomitant]
     Active Substance: LEVOTHYROXINE
     Dosage: 75 QD
     Route: 048
     Dates: start: 20131213, end: 20140220
  10. MAXOLON [Concomitant]
     Active Substance: METOCLOPRAMIDE HYDROCHLORIDE
     Indication: NAUSEA
     Dosage: 10 TID
     Route: 048
     Dates: start: 20131104, end: 20131201
  11. DEXAMETHASONE. [Concomitant]
     Active Substance: DEXAMETHASONE
     Dosage: 4 QD
     Route: 048
     Dates: start: 20131207, end: 20140220
  12. STEMETIL [Concomitant]
     Active Substance: PROCHLORPERAZINE MALEATE
     Indication: NAUSEA
     Dosage: 5 PRN
     Route: 048
     Dates: start: 20130611, end: 20131028
  13. THYROXINE [Concomitant]
     Active Substance: LEVOTHYROXINE
     Dosage: 50 QD
     Route: 048
     Dates: start: 20130903, end: 20131212
  14. ENDONE [Concomitant]
     Active Substance: OXYCODONE HYDROCHLORIDE
     Indication: ABDOMINAL PAIN
     Dosage: 5 PRN
     Route: 048
     Dates: start: 20131028, end: 20131125
  15. DEXAMETHASONE. [Concomitant]
     Active Substance: DEXAMETHASONE
     Indication: DECREASED APPETITE
     Dosage: 2 QD
     Route: 048
     Dates: start: 20131113, end: 20131118
  16. COLOXYL WITH SENNA [Concomitant]
     Active Substance: DOCUSATE\SENNOSIDES
     Indication: CONSTIPATION
     Dosage: 2 PRN
     Route: 048
     Dates: start: 20131125, end: 20131201
  17. MOVICOL [Concomitant]
     Active Substance: POLYETHYLENE GLYCOL 3350\POTASSIUM CHLORIDE\SODIUM BICARBONATE\SODIUM CHLORIDE
     Indication: CONSTIPATION PROPHYLAXIS
     Dosage: 1 BID
     Route: 048
     Dates: start: 20131028, end: 20131030
  18. DEXAMETHASONE. [Concomitant]
     Active Substance: DEXAMETHASONE
     Indication: HEPATOMEGALY
     Dosage: 4 QD
     Route: 048
     Dates: start: 20131104, end: 20131112
  19. TEMAZEPAM. [Concomitant]
     Active Substance: TEMAZEPAM
     Indication: INSOMNIA
     Dosage: 10 PRN
     Route: 048
     Dates: start: 20131101, end: 20140220
  20. RED BLOOD CELLS, CONCENTRATED [Concomitant]
     Active Substance: HUMAN RED BLOOD CELL
     Indication: ANAEMIA
     Dosage: 3
     Route: 042
     Dates: start: 20131127, end: 20131127
  21. CARDIOVASCULAR DRUGS [Concomitant]
     Active Substance: UNSPECIFIED INGREDIENT
     Indication: SEPTIC SHOCK
     Dosage: UNK
     Route: 065
     Dates: start: 20140220

REACTIONS (3)
  - Pneumonia [Not Recovered/Not Resolved]
  - Multiple organ dysfunction syndrome [Fatal]
  - Septic shock [Not Recovered/Not Resolved]

NARRATIVE: CASE EVENT DATE: 20140220
